FAERS Safety Report 6574969-3 (Version None)
Quarter: 2010Q1

REPORT INFORMATION
  Report Type: 
  Country: None (occurrence: None)
  Receive Date: 20100209
  Receipt Date: 20100202
  Transmission Date: 20100710
  Serious: Yes (Life-Threatening, Hospitalization, Other)
  Sender: FDA-Public Use
  Company Number: DE-NOVOPROD-303902

PATIENT
  Sex: Male
  Weight: 96 kg

DRUGS (4)
  1. VICTOZA [Suspect]
     Indication: TYPE 2 DIABETES MELLITUS
     Dosage: UNK
     Route: 058
     Dates: start: 20091109, end: 20100123
  2. MOXONIDIN [Concomitant]
     Dosage: UNK
     Route: 048
  3. BAMBEC                             /00780501/ [Concomitant]
     Dosage: UNK
     Route: 048
  4. RAMIPLUS AL [Concomitant]
     Dosage: UNK
     Route: 048

REACTIONS (4)
  - DYSPNOEA [None]
  - LARYNGEAL OEDEMA [None]
  - PHARYNGEAL OEDEMA [None]
  - SWOLLEN TONGUE [None]
